FAERS Safety Report 4889970-5 (Version None)
Quarter: 2006Q1

REPORT INFORMATION
  Report Type: 
  Country: None (occurrence: None)
  Receive Date: 20060123
  Receipt Date: 20060123
  Transmission Date: 20060701
  Serious: Yes (Hospitalization)
  Sender: FDA-Public Use
  Company Number: None

PATIENT
  Sex: Male
  Weight: 67.2 kg

DRUGS (2)
  1. FLUDARABINE [Suspect]
     Indication: ACUTE MYELOID LEUKAEMIA
     Dosage: 57 MG DAILY IV DRIP
     Route: 041
     Dates: start: 20050504, end: 20050508
  2. MELPHALAN [Suspect]
     Indication: TRANSPLANT
     Dosage: 266 MG DAILY IV DRIP
     Route: 041
     Dates: start: 20050509, end: 20050509

REACTIONS (12)
  - ANOREXIA [None]
  - ASPIRATION [None]
  - COMPUTERISED TOMOGRAM THORAX ABNORMAL [None]
  - COUGH [None]
  - HEPATIC STEATOSIS [None]
  - INTUBATION COMPLICATION [None]
  - PORTAL VEIN OCCLUSION [None]
  - TRACHEAL STENOSIS [None]
  - TRACHEOMALACIA [None]
  - VENOOCCLUSIVE LIVER DISEASE [None]
  - VOMITING [None]
  - WEIGHT DECREASED [None]
